FAERS Safety Report 7092505-2 (Version None)
Quarter: 2011Q1

REPORT INFORMATION
  Report Type: 
  Country: None (occurrence: None)
  Receive Date: 20101108
  Receipt Date: 20101108
  Transmission Date: 20110831
  Serious: No
  Sender: FDA-Public Use
  Company Number: None

PATIENT
  Age: 50 Year
  Sex: Female
  Weight: 72.5755 kg

DRUGS (4)
  1. ARIMIDEX [Suspect]
     Indication: PROGESTERONE RECEPTOR ASSAY POSITIVE
     Dosage: 1/2 MG 1 X DAY PO
     Route: 048
     Dates: start: 20100401, end: 20100930
  2. ARIMIDEX [Suspect]
     Indication: BREAST CANCER
     Dosage: 1/2 MG 1 X DAY PO
     Route: 048
     Dates: start: 20100401, end: 20100930
  3. ARIMIDEX [Suspect]
     Indication: OESTROGEN RECEPTOR ASSAY POSITIVE
     Dosage: 1/2 MG 1 X DAY PO
     Route: 048
     Dates: start: 20100401, end: 20100930
  4. ANASTROZOLE [Suspect]
     Dosage: 1 MG 1 X DAY PO
     Route: 048
     Dates: start: 20101001, end: 20101101

REACTIONS (4)
  - PLANTAR FASCIITIS [None]
  - ARTHRITIS [None]
  - JOINT SWELLING [None]
  - CONDITION AGGRAVATED [None]
